FAERS Safety Report 18340871 (Version 1)
Quarter: 2020Q4

REPORT INFORMATION
  Report Type: Spontaneous
  Country: DE (occurrence: DE)
  Receive Date: 20201003
  Receipt Date: 20201003
  Transmission Date: 20210113
  Serious: Yes (Hospitalization)
  Sender: FDA-Public Use
  Company Number: DE-AUROBINDO-AUR-APL-2020-050185

PATIENT
  Age: 14 Year
  Sex: Female
  Weight: 55 kg

DRUGS (2)
  1. DOLORMIN [Suspect]
     Active Substance: IBUPROFEN
     Indication: POISONING
     Dosage: 8 DOSAGE FORM, ONCE A DAY (8 DF DOSAGE FORM EVERY DAYS)
     Route: 048
     Dates: start: 20190511, end: 20190511
  2. IBUPROFEN 800 MG FILM COATED TABLETS [Suspect]
     Active Substance: IBUPROFEN
     Indication: POISONING
     Dosage: 12 DOSAGE FORM, ONCE A DAY (12 DF DOSAGE FORM EVERY DAYS)
     Route: 048
     Dates: start: 20190511, end: 20190511

REACTIONS (2)
  - Toxicity to various agents [Unknown]
  - Intentional overdose [Unknown]

NARRATIVE: CASE EVENT DATE: 20190511
